FAERS Safety Report 12639027 (Version 2)
Quarter: 2016Q3

REPORT INFORMATION
  Report Type: Report from Study
  Country: US (occurrence: US)
  Receive Date: 20160809
  Receipt Date: 20160829
  Transmission Date: 20161109
  Serious: Yes (Other)
  Sender: FDA-Public Use
  Company Number: US-BIOGEN-2016BI00275416

PATIENT
  Sex: Female

DRUGS (1)
  1. TYSABRI [Suspect]
     Active Substance: NATALIZUMAB
     Indication: MULTIPLE SCLEROSIS
     Route: 042
     Dates: start: 20150629, end: 20160531

REACTIONS (5)
  - Memory impairment [Unknown]
  - Stress [Unknown]
  - Eye disorder [Unknown]
  - Multiple sclerosis [Unknown]
  - Blindness [Unknown]
